FAERS Safety Report 7605247-9 (Version None)
Quarter: 2011Q3

REPORT INFORMATION
  Report Type: 
  Country: None (occurrence: None)
  Receive Date: 20110712
  Receipt Date: 20110712
  Transmission Date: 20111222
  Serious: Yes (Hospitalization)
  Sender: FDA-Public Use
  Company Number: None

PATIENT
  Age: 64 Year
  Sex: Male
  Weight: 70.1 kg

DRUGS (1)
  1. IRINOTECAN HCL [Suspect]
     Indication: OESOPHAGEAL CANCER METASTATIC
     Dosage: 190 MG ONCE IV, 145 MG ONCE IV
     Route: 042
     Dates: start: 20110607, end: 20110607

REACTIONS (3)
  - PAIN IN EXTREMITY [None]
  - MYALGIA [None]
  - FEBRILE NEUTROPENIA [None]
